FAERS Safety Report 7880436-7 (Version None)
Quarter: 2011Q4

REPORT INFORMATION
  Report Type: 
  Country: None (occurrence: None)
  Receive Date: 20111101
  Receipt Date: 20111025
  Transmission Date: 20120403
  Serious: Yes (Hospitalization)
  Sender: FDA-Public Use
  Company Number: PHEH2011US07835

PATIENT

DRUGS (1)
  1. TOBI [Suspect]

REACTIONS (2)
  - CONDITION AGGRAVATED [None]
  - PRODUCT COLOUR ISSUE [None]
